FAERS Safety Report 8018294-2 (Version None)
Quarter: 2012Q1

REPORT INFORMATION
  Report Type: 
  Country: None (occurrence: None)
  Receive Date: 20120103
  Receipt Date: 20111223
  Transmission Date: 20120608
  Serious: Yes (Death)
  Sender: FDA-Public Use
  Company Number: FR-EISAI INC-E3810-05213-SPO-FR

PATIENT
  Sex: Male

DRUGS (7)
  1. BACLOFEN [Concomitant]
     Dates: start: 20111126
  2. BACLOFEN [Concomitant]
     Dates: start: 20111118, end: 20111122
  3. OXAZEPAM [Concomitant]
     Route: 048
     Dates: start: 20111115
  4. RABEPRAZOLE SODIUM [Suspect]
     Indication: ABDOMINAL PAIN UPPER
     Route: 048
     Dates: start: 20111115
  5. BACLOFEN [Concomitant]
     Dates: start: 20111122, end: 20111126
  6. VITAMIN B COMPLEX TAB [Concomitant]
     Route: 048
     Dates: start: 20111115
  7. VITAMIN PP [Concomitant]
     Route: 048
     Dates: start: 20111115

REACTIONS (1)
  - MYOCARDIAL INFARCTION [None]
